FAERS Safety Report 9822149 (Version 2)
Quarter: 2014Q1

REPORT INFORMATION
  Report Type: Spontaneous
  Country: US (occurrence: US)
  Receive Date: 20140116
  Receipt Date: 20140310
  Transmission Date: 20141002
  Serious: Yes (Other)
  Sender: FDA-Public Use
  Company Number: US-SA-2014SA005521

PATIENT
  Age: 53 Year
  Sex: Female
  Weight: 58 kg

DRUGS (9)
  1. APIDRA [Suspect]
     Indication: TYPE 1 DIABETES MELLITUS
     Dosage: DAILY DOSE 20-25 UNITS
     Route: 058
  2. APIDRA [Suspect]
     Indication: GESTATIONAL DIABETES
     Dosage: DAILY DOSE 20-25 UNITS
     Route: 058
  3. APIDRA [Suspect]
     Indication: TYPE 1 DIABETES MELLITUS
     Dosage: 5-6 UNITS.
     Route: 051
     Dates: start: 2009, end: 201401
  4. APIDRA [Suspect]
     Indication: GESTATIONAL DIABETES
     Dosage: 5-6 UNITS.
     Route: 051
     Dates: start: 2009, end: 201401
  5. APIDRA [Suspect]
     Indication: TYPE 1 DIABETES MELLITUS
     Route: 051
  6. APIDRA [Suspect]
     Indication: GESTATIONAL DIABETES
     Route: 051
  7. LANTUS [Concomitant]
     Indication: TYPE 1 DIABETES MELLITUS
  8. LIPITOR [Concomitant]
     Indication: BLOOD CHOLESTEROL
     Dates: start: 2000
  9. ZETIA [Concomitant]
     Indication: BLOOD CHOLESTEROL

REACTIONS (7)
  - Lipoma [Recovered/Resolved]
  - Feeling abnormal [Not Recovered/Not Resolved]
  - Muscle tightness [Recovered/Resolved]
  - Injection site paraesthesia [Not Recovered/Not Resolved]
  - Contusion [Not Recovered/Not Resolved]
  - Injection site pruritus [Recovered/Resolved]
  - Therapeutic response delayed [Unknown]
